FAERS Safety Report 24445112 (Version 1)
Quarter: 2024Q4

REPORT INFORMATION
  Report Type: Spontaneous
  Country: CA (occurrence: CA)
  Receive Date: 20241016
  Receipt Date: 20241016
  Transmission Date: 20250115
  Serious: Yes (Other)
  Sender: ROCHE
  Company Number: CA-ROCHE-10000102183

PATIENT
  Age: 14 Year
  Sex: Male

DRUGS (10)
  1. SOMATROPIN [Suspect]
     Active Substance: SOMATROPIN
     Indication: Short stature
     Route: 058
  2. SOMATROPIN [Suspect]
     Active Substance: SOMATROPIN
     Route: 058
  3. SOMATROPIN [Suspect]
     Active Substance: SOMATROPIN
     Route: 058
  4. SOMATROPIN [Suspect]
     Active Substance: SOMATROPIN
     Route: 058
  5. CALCIUM CARBONATE [Concomitant]
     Active Substance: CALCIUM CARBONATE
     Route: 048
  6. NICOTINAMIDE [Concomitant]
     Active Substance: NIACINAMIDE
     Route: 048
  7. PYRIDOXINE HYDROCHLORIDE [Concomitant]
     Active Substance: PYRIDOXINE HYDROCHLORIDE
     Route: 048
  8. THIAMINE HYDROCHLORIDE [Concomitant]
     Active Substance: THIAMINE HYDROCHLORIDE
     Route: 048
  9. HEDERA HELIX [Concomitant]
     Active Substance: HEDERA HELIX FLOWERING TWIG\HERBALS
  10. FISH OIL\OMEGA-3 FATTY ACIDS [Concomitant]
     Active Substance: FISH OIL\OMEGA-3 FATTY ACIDS

REACTIONS (8)
  - Haematocrit decreased [Unknown]
  - Haemoglobin decreased [Unknown]
  - Insulin-like growth factor increased [Unknown]
  - Knee deformity [Unknown]
  - Product prescribing error [Unknown]
  - Ulna fracture [Unknown]
  - Urine analysis abnormal [Unknown]
  - Wrist fracture [Unknown]
